FAERS Safety Report 23644560 (Version 1)
Quarter: 2024Q1

REPORT INFORMATION
  Report Type: Spontaneous
  Country: US (occurrence: US)
  Receive Date: 20240318
  Receipt Date: 20240318
  Transmission Date: 20240410
  Serious: No
  Sender: FDA-Public Use
  Company Number: US-SA-SAC20240314000346

PATIENT
  Age: 55 Year
  Sex: Male

DRUGS (7)
  1. AMBIEN [Suspect]
     Active Substance: ZOLPIDEM TARTRATE
     Indication: Product used for unknown indication
     Dosage: UNK
     Route: 065
  2. VIVITROL [Suspect]
     Active Substance: NALTREXONE
     Indication: Alcoholism
     Dosage: 380 MG, QM
     Route: 030
     Dates: start: 202311, end: 20240130
  3. VIVITROL [Suspect]
     Active Substance: NALTREXONE
     Dosage: UNK
     Route: 030
     Dates: start: 202312
  4. GABAPENTIN [Concomitant]
     Active Substance: GABAPENTIN
     Dosage: UNK
  5. TRAZODONE [Concomitant]
     Active Substance: TRAZODONE HYDROCHLORIDE
     Dosage: UNK
  6. DOXEPIN [Concomitant]
     Active Substance: DOXEPIN
     Dosage: UNK
  7. TYLENOL PM [Concomitant]
     Active Substance: ACETAMINOPHEN\DIPHENHYDRAMINE
     Dosage: UNK

REACTIONS (7)
  - Feeling abnormal [Unknown]
  - Nightmare [Unknown]
  - Hyperhidrosis [Unknown]
  - Insomnia [Unknown]
  - Headache [Recovered/Resolved]
  - Decreased appetite [Unknown]
  - Vomiting [Unknown]
